FAERS Safety Report 4497844-7 (Version None)
Quarter: 2004Q4

REPORT INFORMATION
  Report Type: 
  Country: None (occurrence: None)
  Receive Date: 20041110
  Receipt Date: 20041012
  Transmission Date: 20050328
  Serious: Yes (Hospitalization, Disabling)
  Sender: FDA-Public Use
  Company Number: JP-GLAXOSMITHKLINE-B0348267A

PATIENT
  Age: 78 Year
  Sex: Female
  Weight: 50.8 kg

DRUGS (3)
  1. VALTREX [Suspect]
     Indication: HERPES ZOSTER
     Dosage: 500MG TWICE PER DAY
     Route: 048
     Dates: start: 20040930, end: 20041004
  2. LOXONIN [Suspect]
     Indication: ANALGESIC EFFECT
     Dosage: 60MG THREE TIMES PER DAY
     Route: 048
     Dates: start: 20040930, end: 20041004
  3. SELBEX [Concomitant]
     Dosage: 150MG PER DAY
     Route: 048
     Dates: start: 20040930, end: 20041004

REACTIONS (4)
  - ABDOMINAL DISTENSION [None]
  - DIARRHOEA [None]
  - NAUSEA [None]
  - RENAL FAILURE ACUTE [None]
